FAERS Safety Report 5337729-7 (Version None)
Quarter: 2007Q1

REPORT INFORMATION
  Report Type: 
  Country: None (occurrence: None)
  Receive Date: 20070308
  Receipt Date: 20061211
  Transmission Date: 20070707
  Serious: No
  Sender: FDA-Public Use
  Company Number: 2006-BP-14361BP

PATIENT
  Sex: Male

DRUGS (14)
  1. SPIRIVA [Suspect]
     Indication: CHRONIC OBSTRUCTIVE PULMONARY DISEASE
     Dosage: 18 MCG (18 MCG, 1 IN 1 D), IH
     Route: 055
     Dates: start: 20060101
  2. ADVAIR (SERETIDE [Concomitant]
  3. ALLEGRA [Concomitant]
  4. HYTRIN [Concomitant]
  5. FLONASE [Concomitant]
  6. RELAFEN [Concomitant]
  7. NIASPAN [Concomitant]
  8. VYTORIN [Concomitant]
  9. ATENOLOL [Concomitant]
  10. CALCIUM CITRATE +D(CALCIUM CITRATE W/VITAMIN D NOS) [Concomitant]
  11. OMEGA 3 (FISH OIL) [Concomitant]
  12. ASCORBIC ACID [Concomitant]
  13. ASPIRIN [Concomitant]
  14. MULTIVITAMIN [Concomitant]

REACTIONS (1)
  - PROSTATIC SPECIFIC ANTIGEN INCREASED [None]
